FAERS Safety Report 7549232-4 (Version None)
Quarter: 2011Q2

REPORT INFORMATION
  Report Type: 
  Country: None (occurrence: None)
  Receive Date: 20110615
  Receipt Date: 20110606
  Transmission Date: 20111010
  Serious: Yes (Hospitalization, Other)
  Sender: FDA-Public Use
  Company Number: BE-ASTRAZENECA-2011SE35425

PATIENT
  Age: 14 Year
  Sex: Female
  Weight: 60 kg

DRUGS (1)
  1. MEPIVACAINE ARTICAINE [Suspect]
     Indication: TOOTH ABSCESS

REACTIONS (1)
  - ENCEPHALOPATHY [None]
